FAERS Safety Report 9206394 (Version 1)
Quarter: 2013Q1

REPORT INFORMATION
  Report Type: Spontaneous
  Country: US (occurrence: None)
  Receive Date: 20120709
  Receipt Date: 20120709
  Transmission Date: 20140127
  Serious: Yes (Other)
  Sender: FDA-Public Use
  Company Number: PHHY2011US63926

PATIENT
  Age: 43 Year
  Sex: Male

DRUGS (2)
  1. GLEEVEC (IMATINIB) UNKNOWN [Suspect]
     Indication: ACUTE LYMPHOCYTIC LEUKAEMIA
     Route: 048
     Dates: start: 20110514
  2. XANAX (ALPRAZOLAM) [Concomitant]

REACTIONS (15)
  - Diarrhoea [None]
  - Dysuria [None]
  - Decreased appetite [None]
  - Muscle spasms [None]
  - Nausea [None]
  - Vomiting [None]
  - Blood pressure increased [None]
  - Myalgia [None]
  - Rash [None]
  - Dyspnoea [None]
  - Weight increased [None]
  - Swelling [None]
  - Fluid retention [None]
  - Bone pain [None]
  - Weight decreased [None]
